FAERS Safety Report 18304199 (Version 3)
Quarter: 2020Q4

REPORT INFORMATION
  Report Type: Spontaneous
  Country: US (occurrence: US)
  Receive Date: 20200923
  Receipt Date: 20201007
  Transmission Date: 20210113
  Serious: Yes (Other)
  Sender: FDA-Public Use
  Company Number: US-CELGENEUS-USA-20200904283

PATIENT
  Age: 63 Year
  Sex: Male

DRUGS (5)
  1. VIDAZA [Suspect]
     Active Substance: AZACITIDINE
     Indication: MYELOFIBROSIS
     Route: 065
     Dates: start: 20200622
  2. INREBIC [Suspect]
     Active Substance: FEDRATINIB HYDROCHLORIDE
     Dosage: DOSE REDUCTION
     Route: 048
     Dates: start: 20200209
  3. INREBIC [Suspect]
     Active Substance: FEDRATINIB HYDROCHLORIDE
     Dosage: DOSE REDUCTION
     Route: 048
     Dates: start: 20200705, end: 202008
  4. INREBIC [Suspect]
     Active Substance: FEDRATINIB HYDROCHLORIDE
     Dosage: 300 MILLIGRAM
     Route: 048
     Dates: start: 202004
  5. INREBIC [Suspect]
     Active Substance: FEDRATINIB HYDROCHLORIDE
     Indication: MYELOFIBROSIS
     Route: 048
     Dates: start: 20191129

REACTIONS (1)
  - Cytopenia [Not Recovered/Not Resolved]

NARRATIVE: CASE EVENT DATE: 20200916
